FAERS Safety Report 19179644 (Version 1)
Quarter: 2021Q2

REPORT INFORMATION
  Report Type: Report from Study
  Country: None (occurrence: SE)
  Receive Date: 20210426
  Receipt Date: 20210426
  Transmission Date: 20210717
  Serious: Yes (Hospitalization)
  Sender: FDA-Public Use
  Company Number: SE-ABBVIE-21K-150-3874365-00

PATIENT
  Sex: Male

DRUGS (2)
  1. DUODOPA [Suspect]
     Active Substance: CARBIDOPA\LEVODOPA
     Indication: PARKINSON^S DISEASE
     Route: 050
  2. DUODOPA [Suspect]
     Active Substance: CARBIDOPA\LEVODOPA
     Dosage: CURRENT DOSAGE: MD: 8 ML, CD: 3.5 ML/H, ED: 1.0 ML. THERAPY DURATION: REMAINS AT 16H
     Route: 050
     Dates: start: 20210421

REACTIONS (3)
  - Medical device site scab [Unknown]
  - Stoma site erythema [Unknown]
  - Electrolyte imbalance [Unknown]
